FAERS Safety Report 13536385 (Version 1)
Quarter: 2017Q2

REPORT INFORMATION
  Report Type: Spontaneous
  Country: US (occurrence: US)
  Receive Date: 20170511
  Receipt Date: 20170511
  Transmission Date: 20170830
  Serious: No
  Sender: FDA-Public Use
  Company Number: US-GALDERMA-US17002091

PATIENT
  Age: 15 Year
  Sex: Female
  Weight: 63.5 kg

DRUGS (3)
  1. EPIDUO FORTE [Suspect]
     Active Substance: ADAPALENE\BENZOYL PEROXIDE
     Indication: ACNE
     Dosage: 0.3%
     Route: 061
     Dates: start: 201610, end: 201703
  2. CETAPHIL [Suspect]
     Active Substance: AVOBENZONE\OCTOCRYLENE\TRICLOSAN
     Route: 061
  3. EPIDUO FORTE [Suspect]
     Active Substance: ADAPALENE\BENZOYL PEROXIDE
     Route: 061

REACTIONS (6)
  - Skin fragility [Unknown]
  - Pain of skin [Unknown]
  - Acne [Not Recovered/Not Resolved]
  - Skin burning sensation [Unknown]
  - Drug ineffective [Not Recovered/Not Resolved]
  - Lacrimation increased [Unknown]
